FAERS Safety Report 8759683 (Version 1)
Quarter: 2012Q4

REPORT INFORMATION
  Report Type: 
  Country: GB (occurrence: GB)
  Receive Date: 20120830
  Receipt Date: 20120830
  Transmission Date: 20130627
  Serious: Yes (Hospitalization, Other)
  Sender: FDA-Public Use
  Company Number: GB-B.I. PHARMACEUTICALS,INC./RIDGEFIELD-2012-UK-01117UK

PATIENT
  Age: 84 Year
  Sex: Male

DRUGS (10)
  1. TRAJENTA [Suspect]
     Dosage: 5 mg
     Route: 048
     Dates: start: 20120731
  2. CLARITHROMYCIN [Concomitant]
  3. CLOPIDOGREL [Concomitant]
  4. CO-AMILOFRUSE [Concomitant]
     Dosage: 1 anz
  5. DOXAZOSIN [Concomitant]
  6. FLIXONASE [Concomitant]
  7. LACTULOSE [Concomitant]
  8. LATANOPROST [Concomitant]
  9. METFORMIN [Concomitant]
  10. SENNA [Concomitant]

REACTIONS (6)
  - Cardiac failure congestive [Recovered/Resolved with Sequelae]
  - Dyspnoea [Unknown]
  - Orthopnoea [Unknown]
  - Oedema [Unknown]
  - Respiratory rate increased [Unknown]
  - Wheezing [Unknown]
